FAERS Safety Report 5652720-9 (Version None)
Quarter: 2008Q1

REPORT INFORMATION
  Report Type: 
  Country: None (occurrence: None)
  Receive Date: 20080131
  Receipt Date: 20071004
  Transmission Date: 20080703
  Serious: No
  Sender: FDA-Public Use
  Company Number: US200710001873

PATIENT
  Age: 59 Year
  Sex: Female

DRUGS (5)
  1. BYETTA [Suspect]
     Indication: INSULIN-REQUIRING TYPE 2 DIABETES MELLITUS
     Dosage: 5 UG,2/D,SUBCUTANEOUS;10 UG,2/D,SUBCUTANEOUS
     Route: 058
     Dates: start: 20070601, end: 20070801
  2. BYETTA [Suspect]
     Indication: INSULIN-REQUIRING TYPE 2 DIABETES MELLITUS
     Dosage: 5 UG,2/D,SUBCUTANEOUS;10 UG,2/D,SUBCUTANEOUS
     Route: 058
     Dates: start: 20070801
  3. EXENATIDE PEN [Concomitant]
  4. HUMALOG [Concomitant]
  5. LANTUS [Concomitant]

REACTIONS (5)
  - DIARRHOEA [None]
  - MALAISE [None]
  - NAUSEA [None]
  - TREMOR [None]
  - VOMITING [None]
